FAERS Safety Report 16863539 (Version 5)
Quarter: 2021Q4

REPORT INFORMATION
  Report Type: Spontaneous
  Country: US (occurrence: US)
  Receive Date: 20190927
  Receipt Date: 20211011
  Transmission Date: 20220303
  Serious: No
  Sender: FDA-Public Use
  Company Number: US-PFIZER INC-2019330972

PATIENT
  Age: 46 Year
  Sex: Female
  Weight: 50.79 kg

DRUGS (2)
  1. LYRICA [Suspect]
     Active Substance: PREGABALIN
     Indication: Fibromyalgia
     Dosage: 50 MG,  TWICE A DAY
     Route: 048
     Dates: start: 201907
  2. LYRICA [Suspect]
     Active Substance: PREGABALIN
     Dosage: 75 MG,  TWICE A DAY
     Route: 048

REACTIONS (3)
  - Drug ineffective [Unknown]
  - Thinking abnormal [Unknown]
  - Product dispensing error [Not Recovered/Not Resolved]

NARRATIVE: CASE EVENT DATE: 20190701
